FAERS Safety Report 16759955 (Version 1)
Quarter: 2019Q3

REPORT INFORMATION
  Report Type: Spontaneous
  Country: CA (occurrence: CA)
  Receive Date: 20190830
  Receipt Date: 20190830
  Transmission Date: 20191005
  Serious: Yes (Other)
  Sender: FDA-Public Use
  Company Number: CA-PFIZER INC-2019370998

PATIENT
  Age: 82 Year
  Sex: Female

DRUGS (1)
  1. DETROL [Suspect]
     Active Substance: TOLTERODINE TARTRATE
     Dosage: UNK
     Route: 065

REACTIONS (3)
  - Dry mouth [Unknown]
  - Pollakiuria [Unknown]
  - Joint swelling [Unknown]
